FAERS Safety Report 8621732-5 (Version None)
Quarter: 2012Q3

REPORT INFORMATION
  Report Type: 
  Country: None (occurrence: None)
  Receive Date: 20120821
  Receipt Date: 20120821
  Transmission Date: 20120928
  Serious: Yes (Life-Threatening, Hospitalization)
  Sender: FDA-Public Use
  Company Number: None

PATIENT
  Age: 44 Year
  Sex: Female
  Weight: 82.5 kg

DRUGS (1)
  1. AMOXICILLIN AND CLAVULANATE POTASSIUM [Suspect]
     Indication: SINUSITIS
     Dosage: 1 TAB, BID, PO
     Route: 048
     Dates: start: 20120709, end: 20120727

REACTIONS (7)
  - DRUG RASH WITH EOSINOPHILIA AND SYSTEMIC SYMPTOMS [None]
  - PYREXIA [None]
  - ERYTHEMA MULTIFORME [None]
  - ANAEMIA [None]
  - THROMBOCYTOPENIA [None]
  - RENAL FAILURE ACUTE [None]
  - ASPARTATE AMINOTRANSFERASE INCREASED [None]
